FAERS Safety Report 9964005 (Version 1)
Quarter: 2014Q1

REPORT INFORMATION
  Report Type: Spontaneous
  Country: US (occurrence: US)
  Receive Date: 20140305
  Receipt Date: 20140305
  Transmission Date: 20141002
  Serious: Yes (Death, Hospitalization)
  Sender: FDA-Public Use
  Company Number: US-GLAXOSMITHKLINE-A1062347A

PATIENT
  Age: 81 Year
  Sex: Male

DRUGS (3)
  1. PROMACTA [Suspect]
     Indication: WHITE BLOOD CELL COUNT DECREASED
     Dosage: 2TAB PER DAY
     Route: 048
  2. EYE DROPS [Concomitant]
  3. OMEPRAZOLE [Concomitant]

REACTIONS (5)
  - Pneumonia [Fatal]
  - Pharyngeal oedema [Not Recovered/Not Resolved]
  - Hospice care [Unknown]
  - Dysphagia [Not Recovered/Not Resolved]
  - Refusal of treatment by patient [Unknown]
